FAERS Safety Report 26159205 (Version 1)
Quarter: 2025Q4

REPORT INFORMATION
  Report Type: Report from Study
  Country: IN (occurrence: IN)
  Receive Date: 20251216
  Receipt Date: 20251216
  Transmission Date: 20260118
  Serious: Yes (Death, Hospitalization)
  Sender: ELI LILLY AND COMPANY
  Company Number: IN-ELI_LILLY_AND_COMPANY-IN202504007093

PATIENT
  Age: 65 Year
  Sex: Male

DRUGS (3)
  1. CYRAMZA [Suspect]
     Active Substance: RAMUCIRUMAB
     Indication: Oesophageal carcinoma
     Dosage: 600 MG, UNKNOWN
     Route: 042
  2. CYRAMZA [Suspect]
     Active Substance: RAMUCIRUMAB
     Dosage: 600 MG, UNKNOWN
     Route: 042
  3. CYRAMZA [Suspect]
     Active Substance: RAMUCIRUMAB
     Dosage: 500 MG, UNKNOWN
     Route: 042

REACTIONS (3)
  - Oesophageal infection [Fatal]
  - Anal infection [Recovering/Resolving]
  - Malaise [Unknown]
